FAERS Safety Report 5817008-1 (Version None)
Quarter: 2008Q3

REPORT INFORMATION
  Report Type: 
  Country: None (occurrence: None)
  Receive Date: 20080722
  Receipt Date: 20070928
  Transmission Date: 20090109
  Serious: No
  Sender: FDA-Public Use
  Company Number: US-BRISTOL-MYERS SQUIBB COMPANY-13923479

PATIENT
  Age: 33 Year
  Sex: Female
  Weight: 75 kg

DRUGS (3)
  1. CEENU CAPS 100 MG [Suspect]
     Dosage: 1 DOSAGE FORM = 1 CAPSULE
     Dates: start: 20070927
  2. SUDAFED 12 HOUR [Concomitant]
  3. ANTIHISTAMINE NOS [Concomitant]

REACTIONS (1)
  - RASH [None]
